FAERS Safety Report 15604957 (Version 1)
Quarter: 2018Q4

REPORT INFORMATION
  Report Type: Spontaneous
  Country: US (occurrence: US)
  Receive Date: 20181111
  Receipt Date: 20181111
  Transmission Date: 20190205
  Serious: No
  Sender: FDA-Public Use
  Company Number: US-AMGEN-USASP2018154132

PATIENT
  Age: 54 Year
  Sex: Female

DRUGS (1)
  1. ENBREL [Suspect]
     Active Substance: ETANERCEPT
     Indication: RHEUMATOID ARTHRITIS
     Dosage: 50 MG, QWK
     Route: 065
     Dates: start: 2015

REACTIONS (6)
  - Wrong technique in product usage process [Unknown]
  - Spider vein [Unknown]
  - Pain in extremity [Not Recovered/Not Resolved]
  - Injection site haemorrhage [Unknown]
  - Contusion [Not Recovered/Not Resolved]
  - Injection site bruising [Not Recovered/Not Resolved]

NARRATIVE: CASE EVENT DATE: 20181024
